FAERS Safety Report 7371862-3 (Version None)
Quarter: 2011Q1

REPORT INFORMATION
  Report Type: 
  Country: None (occurrence: None)
  Receive Date: 20110324
  Receipt Date: 20110321
  Transmission Date: 20110831
  Serious: Yes (Life-Threatening)
  Sender: FDA-Public Use
  Company Number: PHHY2011CA20595

PATIENT
  Sex: Female

DRUGS (4)
  1. IMODIUM [Concomitant]
     Dosage: 1.5 MG
  2. ANTIBIOTICS [Concomitant]
  3. ACLASTA [Suspect]
     Indication: OSTEOPOROSIS
     Dosage: 5 MG
     Route: 042
     Dates: start: 20100330
  4. CELEVAC [Concomitant]
     Dosage: 20 MG, QD

REACTIONS (3)
  - NEPHROLITHIASIS [None]
  - SEPSIS [None]
  - OBSTRUCTIVE UROPATHY [None]
